FAERS Safety Report 14205876 (Version 3)
Quarter: 2018Q1

REPORT INFORMATION
  Report Type: Report from Study
  Country: TR (occurrence: TR)
  Receive Date: 20171120
  Receipt Date: 20180102
  Transmission Date: 20180508
  Serious: Yes (Hospitalization)
  Sender: FDA-Public Use
  Company Number: TR-TAIHO ONCOLOGY INC-US-2017-00297

PATIENT
  Age: 53 Year
  Sex: Male

DRUGS (8)
  1. METOCLOPRAMIDE. [Concomitant]
     Active Substance: METOCLOPRAMIDE
     Indication: NAUSEA
     Dates: start: 20171024, end: 20171024
  2. TRAMADOL HYDROCHLORIDE. [Concomitant]
     Active Substance: TRAMADOL HYDROCHLORIDE
     Indication: ABDOMINAL PAIN
     Dates: start: 20170916
  3. RANITIDINE HYDROCHLORIDE. [Concomitant]
     Active Substance: RANITIDINE HYDROCHLORIDE
     Indication: NAUSEA
     Dates: start: 20171024, end: 20171024
  4. TAS-102 [Suspect]
     Active Substance: TIPIRACIL HYDROCHLORIDE\TRIFLURIDINE
     Indication: OESOPHAGEAL ADENOCARCINOMA STAGE IV
     Dosage: CYCLE 1
     Route: 048
     Dates: start: 20170926, end: 20171007
  5. BETA GLUCAN [Concomitant]
     Active Substance: BETA GLUCAN
     Indication: PROPHYLAXIS
     Dates: start: 20170925
  6. DEXAMETHASONE SODIUM PHOSPHATE. [Concomitant]
     Active Substance: DEXAMETHASONE SODIUM PHOSPHATE
     Indication: NAUSEA
     Dates: start: 20171024, end: 20171024
  7. FENTANYL. [Concomitant]
     Active Substance: FENTANYL
     Indication: ABDOMINAL PAIN
     Dates: start: 20171102, end: 20171102
  8. TAS-102 [Suspect]
     Active Substance: TIPIRACIL HYDROCHLORIDE\TRIFLURIDINE
     Indication: OESOPHAGEAL ADENOCARCINOMA STAGE IV
     Dosage: CURRENT CYCLE 2
     Route: 048
     Dates: start: 20171104, end: 20171104

REACTIONS (1)
  - Gastric haemorrhage [Recovered/Resolved]

NARRATIVE: CASE EVENT DATE: 20171104
